FAERS Safety Report 10180331 (Version 1)
Quarter: 2014Q2

REPORT INFORMATION
  Report Type: Spontaneous
  Country: IN (occurrence: None)
  Receive Date: 20140515
  Receipt Date: 20140515
  Transmission Date: 20141212
  Serious: Yes (Hospitalization, Other)
  Sender: FDA-Public Use
  Company Number: VAL_03115_2014

PATIENT
  Age: 28 Year
  Sex: Female

DRUGS (1)
  1. METOPROLOL (METOPROLOL-METOPROLOL TARTRATE) [Suspect]
     Indication: RIGHT VENTRICULAR DYSFUNCTION
     Route: 048

REACTIONS (2)
  - Right ventricle outflow tract obstruction [None]
  - Pulmonary valve incompetence [None]
